FAERS Safety Report 25674703 (Version 1)
Quarter: 2025Q3

REPORT INFORMATION
  Report Type: Report from Study
  Country: US (occurrence: US)
  Receive Date: 20250813
  Receipt Date: 20250813
  Transmission Date: 20251021
  Serious: Yes (Life-Threatening, Hospitalization)
  Sender: RANBAXY
  Company Number: US-SUN PHARMACEUTICAL INDUSTRIES LTD-2025R1-521899

PATIENT
  Age: 15 Year
  Sex: Female

DRUGS (3)
  1. PAROXETINE [Interacting]
     Active Substance: PAROXETINE
     Indication: Product used for unknown indication
     Route: 065
  2. SEVOFLURANE [Interacting]
     Active Substance: SEVOFLURANE
     Indication: Product used for unknown indication
     Route: 065
  3. AMPHETAMINE [Interacting]
     Active Substance: AMPHETAMINE
     Indication: Product used for unknown indication
     Route: 065

REACTIONS (2)
  - Hypotension [Unknown]
  - Drug interaction [Unknown]
